FAERS Safety Report 9667709 (Version 1)
Quarter: 2013Q4

REPORT INFORMATION
  Report Type: Spontaneous
  Country: DE (occurrence: DE)
  Receive Date: 20131104
  Receipt Date: 20131104
  Transmission Date: 20140711
  Serious: Yes (Congenital Anomaly)
  Sender: FDA-Public Use
  Company Number: DE-TEVA-441135GER

PATIENT
  Age: 1 Day
  Sex: Male

DRUGS (3)
  1. PAROXETIN [Suspect]
     Route: 064
  2. OLANZAPIN [Suspect]
     Route: 064
  3. THYRONAJOD [Concomitant]
     Route: 064

REACTIONS (1)
  - Talipes [Recovering/Resolving]
